FAERS Safety Report 9098013 (Version 2)
Quarter: 2013Q1

REPORT INFORMATION
  Report Type: Spontaneous
  Country: IL (occurrence: IL)
  Receive Date: 20130212
  Receipt Date: 20130222
  Transmission Date: 20140127
  Serious: Yes (Other)
  Sender: FDA-Public Use
  Company Number: IL-BRISTOL-MYERS SQUIBB COMPANY-17366071

PATIENT
  Age: 64 Year
  Sex: Male

DRUGS (5)
  1. METFORMIN HCL [Suspect]
     Indication: DIABETES MELLITUS
     Dosage: ONG?06NOV2009
     Route: 048
     Dates: start: 20090723
  2. BEZAFIBRATE [Concomitant]
     Route: 048
     Dates: start: 20090723
  3. TRITACE [Concomitant]
     Route: 048
     Dates: start: 20091113
  4. SIMOVIL [Concomitant]
     Route: 048
     Dates: start: 20090906
  5. CARTIA [Concomitant]
     Route: 048
     Dates: start: 20090906

REACTIONS (1)
  - Myocardial ischaemia [Recovered/Resolved]
